FAERS Safety Report 15109859 (Version 2)
Quarter: 2018Q4

REPORT INFORMATION
  Report Type: Report from Study
  Country: CN (occurrence: CN)
  Receive Date: 20180705
  Receipt Date: 20181001
  Transmission Date: 20190204
  Serious: Yes (Hospitalization)
  Sender: FDA-Public Use
  Company Number: CN-ACTELION-A-CH2018-174621

PATIENT
  Age: 46 Year
  Sex: Female
  Weight: 49 kg

DRUGS (7)
  1. TRACLEER [Suspect]
     Active Substance: BOSENTAN
     Dosage: 125 MG, BID
     Route: 048
     Dates: start: 201602
  2. SPIRONOLACTONE. [Concomitant]
     Active Substance: SPIRONOLACTONE
     Indication: OEDEMA
     Dosage: 1 DF, BID
     Route: 048
     Dates: start: 201602
  3. CAPOTEN [Concomitant]
     Active Substance: CAPTOPRIL
     Dosage: 1 DF, QD
     Dates: start: 201602
  4. FUROSEMIDE. [Concomitant]
     Active Substance: FUROSEMIDE
     Dosage: 1 DF, OD
     Route: 048
     Dates: start: 201602
  5. TRACLEER [Suspect]
     Active Substance: BOSENTAN
     Indication: PULMONARY ARTERIAL HYPERTENSION
     Dosage: 62.5 MG, BID
     Route: 048
     Dates: start: 201605, end: 201608
  6. IRBESARTAN. [Concomitant]
     Active Substance: IRBESARTAN
     Dosage: 0.5 DF, QD
     Route: 048
     Dates: start: 201602
  7. DIGOXIN. [Concomitant]
     Active Substance: DIGOXIN
     Dosage: 1 DF, OD
     Route: 048
     Dates: start: 201602

REACTIONS (7)
  - Condition aggravated [Not Recovered/Not Resolved]
  - Dyspnoea [Recovered/Resolved with Sequelae]
  - Back pain [Not Recovered/Not Resolved]
  - Asthma [Recovered/Resolved]
  - Pulmonary arterial hypertension [Not Recovered/Not Resolved]
  - Insomnia [Recovered/Resolved with Sequelae]
  - Impaired self-care [Unknown]

NARRATIVE: CASE EVENT DATE: 201605
